FAERS Safety Report 22035660 (Version 1)
Quarter: 2023Q1

REPORT INFORMATION
  Report Type: Spontaneous
  Country: US (occurrence: None)
  Receive Date: 20230223
  Receipt Date: 20230223
  Transmission Date: 20230418
  Serious: Yes (Other)
  Sender: FDA-Public Use
  Company Number: None

PATIENT
  Age: 51 Year
  Sex: Female
  Weight: 48.15 kg

DRUGS (5)
  1. ZOLPIDEM [Suspect]
     Active Substance: ZOLPIDEM TARTRATE
     Indication: Insomnia
     Dosage: FREQUENCY : AT BEDTIME;?
     Route: 048
     Dates: start: 20230127, end: 20230129
  2. MELATONIN [Concomitant]
     Active Substance: MELATONIN
  3. VITAMIN D NOS [Concomitant]
     Active Substance: VITAMIN D NOS
  4. MAGNESIUM [Concomitant]
     Active Substance: MAGNESIUM
  5. IRON [Concomitant]
     Active Substance: IRON

REACTIONS (4)
  - Product substitution issue [None]
  - Product formulation issue [None]
  - Therapeutic product effect delayed [None]
  - Insomnia [None]

NARRATIVE: CASE EVENT DATE: 20230127
